FAERS Safety Report 10306953 (Version 2)
Quarter: 2014Q3

REPORT INFORMATION
  Report Type: Spontaneous
  Country: US (occurrence: US)
  Receive Date: 20140715
  Receipt Date: 20140715
  Transmission Date: 20150326
  Serious: Yes (Hospitalization)
  Sender: FDA-Public Use
  Company Number: US-009507513-2011SP046648

PATIENT
  Sex: Female
  Weight: 97.75 kg

DRUGS (4)
  1. NUVARING [Suspect]
     Active Substance: ETHINYL ESTRADIOL\ETONOGESTREL
     Indication: PRODUCT USED FOR UNKNOWN INDICATION
     Dates: start: 200801, end: 20081024
  2. ALBUTEROL. [Concomitant]
     Active Substance: ALBUTEROL
     Dates: start: 1999
  3. NORVASC [Concomitant]
     Active Substance: AMLODIPINE BESYLATE
     Dates: start: 200106
  4. HYDROCHLOROTHIAZIDE (+) LOSARTAN POTASSIUM [Concomitant]
     Active Substance: HYDROCHLOROTHIAZIDE\LOSARTAN POTASSIUM
     Dates: start: 200106

REACTIONS (10)
  - Vitamin D deficiency [Unknown]
  - Depression [Unknown]
  - Blood homocysteine increased [Unknown]
  - Vasculitis [Unknown]
  - Anxiety [Unknown]
  - Lacunar infarction [Recovered/Resolved]
  - Migraine [Recovered/Resolved]
  - Transient ischaemic attack [Unknown]
  - Hyperlipidaemia [Unknown]
  - Blood pressure increased [Unknown]

NARRATIVE: CASE EVENT DATE: 200807
